FAERS Safety Report 24408686 (Version 1)
Quarter: 2024Q4

REPORT INFORMATION
  Report Type: Spontaneous
  Country: US (occurrence: US)
  Receive Date: 20241007
  Receipt Date: 20241007
  Transmission Date: 20250114
  Serious: No
  Sender: RECKITT BENCKISER
  Company Number: US-Indivior-Limited-INDV-145244-2024

PATIENT
  Sex: Female

DRUGS (3)
  1. SUBLOCADE [Suspect]
     Active Substance: BUPRENORPHINE
     Indication: Drug dependence
     Dosage: 100 MILLIGRAM, QMO
     Route: 058
  2. SUBLOCADE [Suspect]
     Active Substance: BUPRENORPHINE
     Dosage: 100 MILLIGRAMS WITH INCREASINGLY LONGER INTERVALS BETWEEN DOSES
     Route: 058
  3. SUBLOCADE [Suspect]
     Active Substance: BUPRENORPHINE
     Dosage: 50 MILLIGRAM
     Route: 058
     Dates: start: 20240312

REACTIONS (3)
  - Inappropriate schedule of product administration [Recovered/Resolved]
  - Off label use [Recovered/Resolved]
  - No adverse event [Unknown]

NARRATIVE: CASE EVENT DATE: 20240312
